FAERS Safety Report 11722373 (Version 1)
Quarter: 2015Q4

REPORT INFORMATION
  Report Type: Spontaneous
  Country: US (occurrence: None)
  Receive Date: 20151110
  Receipt Date: 20151110
  Transmission Date: 20160304
  Serious: No
  Sender: FDA-Public Use
  Company Number: None

PATIENT
  Age: 24 Year
  Sex: Female
  Weight: 57.61 kg

DRUGS (1)
  1. PLAN B [Suspect]
     Active Substance: LEVONORGESTREL
     Indication: CONTRACEPTION
     Dosage: 1 PILL
     Route: 048
     Dates: start: 20150614, end: 20150614

REACTIONS (18)
  - Polymenorrhoea [None]
  - Pigmentation disorder [None]
  - Weight increased [None]
  - Impaired work ability [None]
  - Crying [None]
  - Depression [None]
  - Rash macular [None]
  - Asthenia [None]
  - Hot flush [None]
  - Weight decreased [None]
  - Menorrhagia [None]
  - Nausea [None]
  - Decreased appetite [None]
  - Hypophagia [None]
  - Rash [None]
  - Dysmenorrhoea [None]
  - Metrorrhagia [None]
  - Mood swings [None]

NARRATIVE: CASE EVENT DATE: 20150614
